FAERS Safety Report 16687791 (Version 1)
Quarter: 2019Q3

REPORT INFORMATION
  Report Type: Spontaneous
  Country: US (occurrence: US)
  Receive Date: 20190809
  Receipt Date: 20190809
  Transmission Date: 20191004
  Serious: No
  Sender: FDA-Public Use
  Company Number: US-PFIZER INC-2019342098

PATIENT
  Age: 55 Year
  Sex: Female
  Weight: 76 kg

DRUGS (5)
  1. MIRTAZAPINE. [Concomitant]
     Active Substance: MIRTAZAPINE
     Indication: SLEEP DISORDER
     Dosage: UNK
  2. CITALOPRAM [Concomitant]
     Active Substance: CITALOPRAM HYDROBROMIDE
     Indication: DEPRESSION
     Dosage: 40 MG, 1X/DAY
  3. DESVENLAFAXINE SUCCINATE MONOHYDRATE [Suspect]
     Active Substance: DESVENLAFAXINE SUCCINATE
     Dosage: UNK, 1X/DAY (AT NIGHT)
     Dates: start: 20190802
  4. DESVENLAFAXINE SUCCINATE MONOHYDRATE [Suspect]
     Active Substance: DESVENLAFAXINE SUCCINATE
     Indication: DEPRESSION
     Dosage: 25 MG, 1X/DAY (ER 25MG; ONCE A DAY IN THE MORNING)
     Dates: start: 20190705
  5. QUETIAPINE FUMARATE. [Concomitant]
     Active Substance: QUETIAPINE FUMARATE
     Indication: SLEEP DISORDER
     Dosage: 50 MG, 1X/DAY (SHE TAKES 50MG, THEY ARE 100MG BUT SHE CUTS IT AND TAKES IT ONCE AT NIGHT)

REACTIONS (2)
  - Dizziness [Unknown]
  - Nausea [Unknown]
